FAERS Safety Report 5269561-7 (Version None)
Quarter: 2007Q1

REPORT INFORMATION
  Report Type: 
  Country: None (occurrence: None)
  Receive Date: 20061213
  Receipt Date: 20031023
  Transmission Date: 20070707
  Serious: Yes (Other)
  Sender: FDA-Public Use
  Company Number: 2003UW13839

PATIENT
  Sex: Female

DRUGS (2)
  1. IRESSA [Suspect]
     Indication: NON-SMALL CELL LUNG CANCER
     Dates: start: 20030101
  2. PREVACID [Concomitant]

REACTIONS (1)
  - DRUG INEFFECTIVE [None]
